FAERS Safety Report 8292203-3 (Version None)
Quarter: 2012Q2

REPORT INFORMATION
  Report Type: 
  Country: None (occurrence: None)
  Receive Date: 20120417
  Receipt Date: 20120409
  Transmission Date: 20120825
  Serious: Yes (Other)
  Sender: FDA-Public Use
  Company Number: US-B.I. PHARMACEUTICALS,INC./RIDGEFIELD-2012-BP-06610BP

PATIENT
  Sex: Female

DRUGS (12)
  1. SYMBICORT [Concomitant]
  2. FLOVENT [Concomitant]
  3. COMBIVENT [Suspect]
     Route: 055
  4. DIAZEPAM [Concomitant]
  5. LISINOPRIL [Concomitant]
     Indication: HYPERTENSION
  6. HYDROCODONE BITARTRATE AND ACETAMINOPHEN [Concomitant]
  7. ATIVAN [Concomitant]
  8. HYDROCHLOROTHIAZIDE [Concomitant]
     Indication: HYPERTENSION
  9. FUROSEMIDE [Concomitant]
     Indication: HYPERTENSION
  10. LEVOTHYROXINE SODIUM [Concomitant]
     Indication: HYPOTHYROIDISM
  11. OMEPRAZOLE [Concomitant]
  12. SINGULAIR [Concomitant]

REACTIONS (2)
  - SLEEP APNOEA SYNDROME [None]
  - MYOCARDIAL INFARCTION [None]
